FAERS Safety Report 25633511 (Version 2)
Quarter: 2025Q3

REPORT INFORMATION
  Report Type: Spontaneous
  Country: US (occurrence: US)
  Receive Date: 20250801
  Receipt Date: 20250815
  Transmission Date: 20251021
  Serious: Yes (Death, Hospitalization, Other)
  Sender: ALEXION PHARMACEUTICALS
  Company Number: US-AstraZeneca-CH-00921274A

PATIENT
  Age: 72 Year
  Sex: Female

DRUGS (3)
  1. TRUQAP [Suspect]
     Active Substance: CAPIVASERTIB
     Indication: Breast cancer
  2. FULVESTRANT [Suspect]
     Active Substance: FULVESTRANT
     Indication: Breast cancer
  3. FULVESTRANT [Suspect]
     Active Substance: FULVESTRANT

REACTIONS (6)
  - Hepatotoxicity [Unknown]
  - Abdominal pain [Fatal]
  - Hepatic failure [Fatal]
  - Hepatic cirrhosis [Fatal]
  - Therapy partial responder [Unknown]
  - Liver function test increased [Unknown]

NARRATIVE: CASE EVENT DATE: 20250601
